FAERS Safety Report 5144561-6 (Version None)
Quarter: 2006Q4

REPORT INFORMATION
  Report Type: 
  Country: None (occurrence: None)
  Receive Date: 20061031
  Receipt Date: 20061019
  Transmission Date: 20070319
  Serious: Yes (Hospitalization)
  Sender: FDA-Public Use
  Company Number: 2006113821

PATIENT
  Age: 55 Year
  Sex: Male
  Weight: 78.7 kg

DRUGS (5)
  1. SU-011,248 (SUNITINIB MALATE) [Suspect]
     Indication: NON-SMALL CELL LUNG CANCER
     Dosage: 50 MG (50 MG, OD, DAY 1-14), ORAL
     Route: 048
     Dates: start: 20060406
  2. GEMCITABINE [Suspect]
     Indication: NON-SMALL CELL LUNG CANCER
     Dosage: 1680 MG (1680 MG, OD, DAY 1 + 8), INTRAVENOUS
     Route: 042
     Dates: start: 20060413, end: 20060908
  3. CISPLATIN [Suspect]
     Indication: NON-SMALL CELL LUNG CANCER
     Dosage: 134.4 MG (134.4 MG, OD, DAY 1), INTRAVENOUS
     Route: 042
     Dates: start: 20060413, end: 20060908
  4. VIANI (FLUTICASONE PROPIONATE, SALMETEROL XINAFOATE) [Concomitant]
  5. MUCOFALK (PSYLLIUM HYDROPHILIC MUCILLOID) [Concomitant]

REACTIONS (3)
  - DRUG INTERACTION [None]
  - NAUSEA [None]
  - VOMITING [None]
